FAERS Safety Report 8078351-1 (Version None)
Quarter: 2012Q1

REPORT INFORMATION
  Report Type: 
  Country: None (occurrence: None)
  Receive Date: 20120123
  Receipt Date: 20120109
  Transmission Date: 20120608
  Serious: Yes (Death)
  Sender: FDA-Public Use
  Company Number: JPI-P-004334

PATIENT
  Age: 45 Year
  Sex: Female

DRUGS (8)
  1. HYDROCODONE BITARTRATE AND ACETAMINOPHEN [Concomitant]
  2. PSYCHODYSLEPTICS (HALLUCINOGENS) [Suspect]
     Indication: PRODUCT USED FOR UNKNOWN INDICATION
     Dates: end: 20080522
  3. TIZANIDINE HCL [Concomitant]
  4. NARCOTIC [Suspect]
     Indication: PRODUCT USED FOR UNKNOWN INDICATION
     Dates: end: 20080522
  5. XYREM [Suspect]
     Indication: FIBROMYALGIA
     Dosage: 9 GM (4.5 GM, 2 I 1 D) ORAL
     Route: 048
     Dates: end: 20080522
  6. XYREM [Suspect]
     Indication: INSOMNIA
     Dosage: 9 GM (4.5 GM, 2 I 1 D) ORAL
     Route: 048
     Dates: end: 20080522
  7. XYREM [Suspect]
     Indication: FIBROMYALGIA
     Dosage: 9 GM (4.5 GM, 2 I 1 D) ORAL
     Route: 048
     Dates: start: 20060501
  8. XYREM [Suspect]
     Indication: INSOMNIA
     Dosage: 9 GM (4.5 GM, 2 I 1 D) ORAL
     Route: 048
     Dates: start: 20060501

REACTIONS (1)
  - DEATH [None]
